APPROVED DRUG PRODUCT: FLUCONAZOLE
Active Ingredient: FLUCONAZOLE
Strength: 100MG
Dosage Form/Route: TABLET;ORAL
Application: A218692 | Product #002 | TE Code: AB
Applicant: FDC LTD
Approved: Jan 8, 2026 | RLD: No | RS: No | Type: RX